FAERS Safety Report 5388112-X (Version None)
Quarter: 2007Q3

REPORT INFORMATION
  Report Type: 
  Country: None (occurrence: None)
  Receive Date: 20070716
  Receipt Date: 20061201
  Transmission Date: 20080115
  Serious: No
  Sender: FDA-Public Use
  Company Number: A0628590A

PATIENT
  Age: 51 Year
  Sex: Female

DRUGS (1)
  1. NICORETTE (MINT) [Suspect]
     Dosage: 4MG AS DIRECTED
     Route: 002
     Dates: start: 20061124, end: 20061124

REACTIONS (1)
  - DYSPEPSIA [None]
